FAERS Safety Report 14544915 (Version 6)
Quarter: 2019Q1

REPORT INFORMATION
  Report Type: Spontaneous
  Country: IT (occurrence: IT)
  Receive Date: 20180217
  Receipt Date: 20190213
  Transmission Date: 20190417
  Serious: Yes (Disabling, Other)
  Sender: FDA-Public Use
  Company Number: IT-MYLANLABS-2018M1010129

PATIENT
  Age: 66 Year
  Sex: Male
  Weight: 70 kg

DRUGS (11)
  1. ETOPOSIDE. [Suspect]
     Active Substance: ETOPOSIDE
     Dosage: 100 MG/M2, QCYCLE ON DAY 2, 3 AND 4
     Route: 042
  2. G-CSF [Concomitant]
     Active Substance: GRANULOCYTE COLONY-STIMULATING FACTOR NOS
     Indication: PROPHYLAXIS
     Dosage: UNK
     Route: 065
  3. VEPESID [Suspect]
     Active Substance: ETOPOSIDE
     Indication: PRODUCT USED FOR UNKNOWN INDICATION
     Dosage: 100 MILLIGRAM/SQ. METER
     Route: 042
  4. CISPLATIN. [Suspect]
     Active Substance: CISPLATIN
     Dosage: 40 MILLIGRAM/SQ. METER
     Route: 042
  5. ETOPOSIDE. [Suspect]
     Active Substance: ETOPOSIDE
     Indication: ADRENOCORTICAL CARCINOMA
     Dosage: 100 MG/M2, QCYCLE ON DAY 2, 3 AND 4
     Route: 042
  6. CISPLATIN. [Suspect]
     Active Substance: CISPLATIN
     Indication: ADRENOCORTICAL CARCINOMA
     Dosage: 40 MG/M2, UNK (40 MG/M2, QCYCLE ON DAY 3 AND 4)
     Route: 042
  7. METYRAPONE [Suspect]
     Active Substance: METYRAPONE
     Indication: CUSHING^S SYNDROME
     Dosage: 750 MG, QD (250MG THREE TIMES DAILY)
     Route: 048
  8. PEGFILGRASTIM [Concomitant]
     Active Substance: PEGFILGRASTIM
     Indication: PROPHYLAXIS
     Dosage: UNK
     Route: 065
  9. DOXORUBICIN [Suspect]
     Active Substance: DOXORUBICIN
     Dosage: 40 MILLIGRAM/SQ. METER
     Route: 042
  10. DOXORUBICIN [Suspect]
     Active Substance: DOXORUBICIN
     Indication: ADRENOCORTICAL CARCINOMA
     Dosage: 40 MG/M2, UNK (40 MG/M2, QCYCLE ON DAY 1)
     Route: 042
  11. MITOTANE [Suspect]
     Active Substance: MITOTANE
     Indication: ADRENOCORTICAL CARCINOMA
     Dosage: 3 GRAM, QD
     Route: 048

REACTIONS (7)
  - Thrombocytopenia [Recovering/Resolving]
  - Nausea [Recovering/Resolving]
  - Product use in unapproved indication [Unknown]
  - Malignant neoplasm progression [Unknown]
  - Asthenia [Not Recovered/Not Resolved]
  - Anaemia [Recovering/Resolving]
  - Vomiting [Recovering/Resolving]
